FAERS Safety Report 14950571 (Version 1)
Quarter: 2018Q2

REPORT INFORMATION
  Report Type: Spontaneous
  Country: DE (occurrence: DE)
  Receive Date: 20180530
  Receipt Date: 20180530
  Transmission Date: 20180711
  Serious: Yes (Hospitalization, Other)
  Sender: FDA-Public Use
  Company Number: DE-TEVA-773611GER

PATIENT
  Age: 53 Year
  Sex: Female

DRUGS (8)
  1. DIPIPERON [Suspect]
     Active Substance: PIPAMPERONE
     Route: 048
     Dates: start: 20161014
  2. ABILIFY [Interacting]
     Active Substance: ARIPIPRAZOLE
     Indication: GENERALISED TONIC-CLONIC SEIZURE
     Dosage: 10 MILLIGRAM DAILY;
     Route: 048
     Dates: start: 20161103, end: 20161106
  3. DIPIPERON [Suspect]
     Active Substance: PIPAMPERONE
     Dates: start: 20161004
  4. ABILIFY [Interacting]
     Active Substance: ARIPIPRAZOLE
     Indication: PRODUCT USED FOR UNKNOWN INDICATION
     Route: 048
     Dates: start: 20161027, end: 20161102
  5. ATOSIL [Interacting]
     Active Substance: PROMETHAZINE HYDROCHLORIDE
     Indication: PRODUCT USED FOR UNKNOWN INDICATION
     Route: 048
     Dates: start: 20160915, end: 20161014
  6. ATOSIL [Interacting]
     Active Substance: PROMETHAZINE HYDROCHLORIDE
     Route: 048
     Dates: start: 20161104, end: 20161104
  7. ATOSIL [Interacting]
     Active Substance: PROMETHAZINE HYDROCHLORIDE
     Route: 048
     Dates: start: 20161105, end: 20161105
  8. CLOZAPIN [Suspect]
     Active Substance: CLOZAPINE
     Route: 048
     Dates: start: 20060101

REACTIONS (15)
  - Prescribed underdose [Unknown]
  - Enuresis [Unknown]
  - Product use in unapproved indication [Unknown]
  - Unresponsive to stimuli [Unknown]
  - Subgaleal haematoma [Unknown]
  - Restlessness [Unknown]
  - Cerebral disorder [Unknown]
  - Leukocytosis [Unknown]
  - Sleep disorder [Unknown]
  - Drug interaction [Recovered/Resolved]
  - Generalised tonic-clonic seizure [Recovered/Resolved]
  - Laboratory test abnormal [Unknown]
  - Leukoencephalopathy [Unknown]
  - Drug ineffective [Unknown]
  - Generalised tonic-clonic seizure [Recovered/Resolved]

NARRATIVE: CASE EVENT DATE: 20161105
